FAERS Safety Report 13935585 (Version 5)
Quarter: 2017Q4

REPORT INFORMATION
  Report Type: Spontaneous
  Country: JP (occurrence: JP)
  Receive Date: 20170905
  Receipt Date: 20171114
  Transmission Date: 20180320
  Serious: Yes (Hospitalization, Disabling)
  Sender: FDA-Public Use
  Company Number: PHJP2017JP027389

PATIENT
  Age: 58 Year
  Sex: Female
  Weight: 42 kg

DRUGS (6)
  1. SYMMETREL [Suspect]
     Active Substance: AMANTADINE HYDROCHLORIDE
     Indication: PARKINSON^S DISEASE
     Dosage: 100 MG, TID
     Route: 048
  2. NEODOPASOL [Concomitant]
     Active Substance: BENSERAZIDE HYDROCHLORIDE\LEVODOPA
     Indication: PARKINSON^S DISEASE
     Dosage: 1 DF, 5QD
     Route: 048
  3. COMTAN [Suspect]
     Active Substance: ENTACAPONE
     Indication: PARKINSON^S DISEASE
     Dosage: 100 MG, QID
     Route: 048
     Dates: start: 20150930, end: 20170821
  4. TRERIEF [Concomitant]
     Active Substance: ZONISAMIDE
     Indication: PARKINSON^S DISEASE
     Dosage: 50 MG, QD
     Route: 048
     Dates: start: 20160907, end: 20170821
  5. NOURIAST [Concomitant]
     Active Substance: ISTRADEFYLLINE
     Indication: PARKINSON^S DISEASE
     Dosage: 2 DF, QD
     Route: 048
  6. NEUPRO [Concomitant]
     Active Substance: ROTIGOTINE
     Indication: PARKINSON^S DISEASE
     Dosage: 36 MG, QD
     Route: 062
     Dates: start: 20150527

REACTIONS (7)
  - Blood erythropoietin decreased [Unknown]
  - Nephrogenic anaemia [Not Recovered/Not Resolved]
  - Blood creatinine increased [Unknown]
  - Hallucination [Recovered/Resolved]
  - Tubulointerstitial nephritis [Recovering/Resolving]
  - Gait disturbance [Recovering/Resolving]
  - Dehydration [Unknown]

NARRATIVE: CASE EVENT DATE: 20170814
